FAERS Safety Report 25017556 (Version 1)
Quarter: 2025Q1

REPORT INFORMATION
  Report Type: Spontaneous
  Country: US (occurrence: US)
  Receive Date: 20250227
  Receipt Date: 20250227
  Transmission Date: 20250408
  Serious: Yes (Other)
  Sender: AUROBINDO
  Company Number: US-AUROBINDO-AUR-APL-2025-009803

PATIENT
  Age: 39 Year
  Sex: Female

DRUGS (1)
  1. ACETAMINOPHEN [Suspect]
     Active Substance: ACETAMINOPHEN
     Indication: Product used for unknown indication
     Route: 065

REACTIONS (8)
  - Drug abuse [Unknown]
  - Sinus pain [Unknown]
  - Nasal congestion [Unknown]
  - Anosmia [Unknown]
  - Rhinorrhoea [Unknown]
  - Oropharyngeal discomfort [Unknown]
  - Odynophagia [Unknown]
  - Incorrect route of product administration [Unknown]
